FAERS Safety Report 5114650-0 (Version None)
Quarter: 2006Q3

REPORT INFORMATION
  Report Type: 
  Country: None (occurrence: None)
  Receive Date: 20060926
  Receipt Date: 20060914
  Transmission Date: 20061208
  Serious: Yes (Death, Other)
  Sender: FDA-Public Use
  Company Number: US-JNJFOC-20050201625

PATIENT
  Sex: Female

DRUGS (9)
  1. REMICADE [Suspect]
     Indication: RHEUMATOID ARTHRITIS
     Route: 042
  2. PREDNISONE TAB [Concomitant]
  3. ECOTRIN [Concomitant]
  4. POTASSIUM [Concomitant]
  5. NORVASC [Concomitant]
  6. FUROSEMIDE [Concomitant]
  7. METHOTREXATE [Concomitant]
  8. PROTONIX [Concomitant]
  9. FOLIC ACID [Concomitant]

REACTIONS (6)
  - DEATH [None]
  - LIVER DISORDER [None]
  - OBESITY [None]
  - PNEUMONIA [None]
  - PULMONARY EMBOLISM [None]
  - RHEUMATOID ARTHRITIS [None]
